APPROVED DRUG PRODUCT: POTASSIUM CHLORIDE
Active Ingredient: POTASSIUM CHLORIDE
Strength: 10MEQ
Dosage Form/Route: TABLET, EXTENDED RELEASE;ORAL
Application: A214452 | Product #001 | TE Code: AB1
Applicant: GRANULES INDIA LTD
Approved: Oct 21, 2020 | RLD: No | RS: No | Type: RX